FAERS Safety Report 21083630 (Version 3)
Quarter: 2022Q3

REPORT INFORMATION
  Report Type: Spontaneous
  Country: US (occurrence: None)
  Receive Date: 20220714
  Receipt Date: 20220820
  Transmission Date: 20221027
  Serious: No
  Sender: FDA-Public Use
  Company Number: 2022A243733

PATIENT
  Age: 9735 Day
  Sex: Female
  Weight: 51.7 kg

DRUGS (1)
  1. FASENRA [Suspect]
     Active Substance: BENRALIZUMAB
     Indication: Asthma
     Route: 058
     Dates: start: 20220630

REACTIONS (7)
  - Blood pressure abnormal [Recovering/Resolving]
  - Blood pressure decreased [Recovering/Resolving]
  - Headache [Recovering/Resolving]
  - Chest discomfort [Recovering/Resolving]
  - Pain [Recovering/Resolving]
  - Pyrexia [Recovering/Resolving]
  - Dizziness [Recovering/Resolving]

NARRATIVE: CASE EVENT DATE: 20220630
